FAERS Safety Report 8056089-4 (Version None)
Quarter: 2012Q1

REPORT INFORMATION
  Report Type: 
  Country: None (occurrence: None)
  Receive Date: 20120119
  Receipt Date: 20120110
  Transmission Date: 20120608
  Serious: Yes (Hospitalization)
  Sender: FDA-Public Use
  Company Number: US-JNJFOC-20110106292

PATIENT
  Age: 19 Year
  Sex: Male
  Weight: 52 kg

DRUGS (3)
  1. BENZTROPINE MESYLATE [Concomitant]
     Indication: BIPOLAR DISORDER
  2. HALOPERIDOL [Concomitant]
     Indication: BIPOLAR DISORDER
  3. EXTRA STRENGTH TYLENOL PM [Suspect]
     Indication: PRODUCT USED FOR UNKNOWN INDICATION
     Route: 065
     Dates: start: 20110114, end: 20110114

REACTIONS (3)
  - SUICIDE ATTEMPT [None]
  - INTENTIONAL OVERDOSE [None]
  - AGITATION [None]
